FAERS Safety Report 4767301-9 (Version None)
Quarter: 2005Q3

REPORT INFORMATION
  Report Type: 
  Country: None (occurrence: None)
  Receive Date: 20050913
  Receipt Date: 20050706
  Transmission Date: 20060218
  Serious: Yes (Hospitalization)
  Sender: FDA-Public Use
  Company Number: SE-GLAXOSMITHKLINE-B0387514A

PATIENT
  Age: 87 Year
  Sex: Female

DRUGS (7)
  1. VALTREX [Suspect]
     Indication: HERPES ZOSTER OTICUS
     Dosage: 1G THREE TIMES PER DAY
     Route: 048
     Dates: start: 19970720, end: 19970724
  2. ALVEDON [Concomitant]
  3. FLAGYL [Concomitant]
  4. SALURES K [Concomitant]
  5. METADON [Concomitant]
  6. IMOVANE [Concomitant]
  7. ZOVIRAX [Concomitant]

REACTIONS (3)
  - CONFUSIONAL STATE [None]
  - DISORIENTATION [None]
  - PYREXIA [None]
